FAERS Safety Report 8138286-2 (Version None)
Quarter: 2012Q1

REPORT INFORMATION
  Report Type: 
  Country: None (occurrence: None)
  Receive Date: 20120215
  Receipt Date: 20120207
  Transmission Date: 20120608
  Serious: Yes (Hospitalization, Other)
  Sender: FDA-Public Use
  Company Number: FR-JNJFOC-20120110682

PATIENT
  Sex: Male

DRUGS (1)
  1. XARELTO [Suspect]
     Indication: HIP ARTHROPLASTY
     Route: 048
     Dates: start: 20110419

REACTIONS (2)
  - HAEMATOMA [None]
  - HAEMATOMA INFECTION [None]
